FAERS Safety Report 22021937 (Version 1)
Quarter: 2023Q1

REPORT INFORMATION
  Report Type: Spontaneous
  Country: US (occurrence: None)
  Receive Date: 20230219
  Receipt Date: 20230219
  Transmission Date: 20230418
  Serious: Yes (Disabling)
  Sender: FDA-Public Use
  Company Number: None

PATIENT
  Age: 20 Year
  Sex: Female
  Weight: 45 kg

DRUGS (2)
  1. ESCITALOPRAM [Suspect]
     Active Substance: ESCITALOPRAM OXALATE
     Indication: Depression
     Dates: start: 20191009, end: 20211117
  2. ESCITALOPRAM [Suspect]
     Active Substance: ESCITALOPRAM OXALATE
     Indication: Social anxiety disorder

REACTIONS (5)
  - Sexual dysfunction [None]
  - Loss of libido [None]
  - Genital hypoaesthesia [None]
  - Female orgasmic disorder [None]
  - Hypomenorrhoea [None]

NARRATIVE: CASE EVENT DATE: 20211117
